FAERS Safety Report 7162266-7 (Version None)
Quarter: 2010Q4

REPORT INFORMATION
  Report Type: 
  Country: None (occurrence: None)
  Receive Date: 20101215
  Receipt Date: 20090930
  Transmission Date: 20110411
  Serious: Yes (Other)
  Sender: FDA-Public Use
  Company Number: AR-PFIZER INC-2009271897

PATIENT
  Age: 69 Year

DRUGS (8)
  1. LYRICA [Suspect]
     Indication: NEURALGIA
     Dosage: 150 MG, 2 TO 3 TIMES A DAY, EVERY DAY
     Route: 048
     Dates: start: 20090827
  2. DICLOFENAC [Concomitant]
     Dosage: UNK
     Route: 048
  3. ATENOLOL [Concomitant]
     Dosage: UNK
     Route: 048
  4. AMIODARONE [Concomitant]
     Dosage: UNK
     Route: 048
  5. ASPIRIN [Concomitant]
     Dosage: UNK
     Route: 048
  6. TIOTROPIUM [Concomitant]
     Dosage: UNK
     Route: 055
  7. ROSUVASTATIN [Concomitant]
     Dosage: UNK
     Route: 048
  8. FLUTICASONE [Concomitant]
     Dosage: UNK
     Route: 055

REACTIONS (1)
  - NEUTROPENIA [None]
